FAERS Safety Report 8880625 (Version 1)
Quarter: 2012Q4

REPORT INFORMATION
  Report Type: Report from Study
  Country: ES (occurrence: ES)
  Receive Date: 20121101
  Receipt Date: 20121101
  Transmission Date: 20130627
  Serious: Yes (Other)
  Sender: FDA-Public Use
  Company Number: ES-JNJFOC-20121013106

PATIENT
  Age: 45 Year
  Sex: Male
  Weight: 94 kg

DRUGS (5)
  1. USTEKINUMAB [Suspect]
     Indication: PSORIASIS
     Route: 058
  2. USTEKINUMAB [Suspect]
     Indication: PSORIASIS
     Route: 058
  3. USTEKINUMAB [Suspect]
     Indication: PSORIASIS
     Route: 058
  4. CYCLOSPORINE [Suspect]
     Indication: PRODUCT USED FOR UNKNOWN INDICATION
     Dates: start: 201208
  5. METHOTREXATE [Suspect]
     Indication: PRODUCT USED FOR UNKNOWN INDICATION

REACTIONS (4)
  - Nephropathy toxic [Unknown]
  - Drug ineffective [Unknown]
  - Psoriasis [Unknown]
  - Weight increased [Unknown]
